FAERS Safety Report 4361152-5 (Version None)
Quarter: 2004Q2

REPORT INFORMATION
  Report Type: 
  Country: None (occurrence: None)
  Receive Date: 20040511
  Receipt Date: 20040226
  Transmission Date: 20050107
  Serious: Yes (Hospitalization)
  Sender: FDA-Public Use
  Company Number: USA030948132

PATIENT
  Age: 52 Year
  Sex: Female
  Weight: 81 kg

DRUGS (6)
  1. HUMALOG [Suspect]
     Indication: DIABETES MELLITUS
     Dates: start: 19970101, end: 20030909
  2. HUMATROPE [Suspect]
     Indication: HYPOTHALAMO-PITUITARY DISORDERS
     Dosage: 0.8 MG/DAY
     Dates: start: 20030801
  3. PROZAC WEEKLY [Suspect]
     Dosage: 90 MG/WEEK
     Dates: start: 20000101
  4. NOVOLOG [Concomitant]
  5. LANTUS [Concomitant]
  6. TOPROL-XL [Concomitant]

REACTIONS (10)
  - ASTHENIA [None]
  - BLOOD GLUCOSE DECREASED [None]
  - BLOOD GLUCOSE INCREASED [None]
  - CONFUSIONAL STATE [None]
  - DIZZINESS [None]
  - FEAR [None]
  - HYPOTHALAMO-PITUITARY DISORDERS [None]
  - NERVOUSNESS [None]
  - VAGINAL HAEMORRHAGE [None]
  - VAGINAL MYCOSIS [None]
